FAERS Safety Report 23425277 (Version 1)
Quarter: 2024Q1

REPORT INFORMATION
  Report Type: Spontaneous
  Country: CA (occurrence: CA)
  Receive Date: 20240121
  Receipt Date: 20240121
  Transmission Date: 20240410
  Serious: Yes (Life-Threatening, Hospitalization, Disabling, Other)
  Sender: FDA-Public Use
  Company Number: CA-002147023-NVSC2024CA009440

PATIENT

DRUGS (108)
  1. DICLOFENAC SODIUM [Suspect]
     Active Substance: DICLOFENAC\DICLOFENAC SODIUM
     Indication: Product used for unknown indication
     Dosage: 50 MG
     Route: 065
  2. VITAMIN C [Suspect]
     Active Substance: ASCORBIC ACID
     Indication: Product used for unknown indication
     Dosage: UNK
     Route: 065
  3. CALCIUM CARBONATE [Suspect]
     Active Substance: CALCIUM CARBONATE
     Indication: Product used for unknown indication
     Dosage: UNK
     Route: 065
  4. CETIRIZINE HYDROCHLORIDE [Suspect]
     Active Substance: CETIRIZINE HYDROCHLORIDE
     Indication: Rheumatoid arthritis
     Dosage: 25 MG
     Route: 065
  5. CETIRIZINE HYDROCHLORIDE [Suspect]
     Active Substance: CETIRIZINE HYDROCHLORIDE
     Dosage: 10 MG
     Route: 065
  6. CHLORHEXIDINE [Suspect]
     Active Substance: CHLORHEXIDINE\CHLORHEXIDINE GLUCONATE
     Indication: Product used for unknown indication
     Dosage: UNK
     Route: 065
  7. CHOLECALCIFEROL [Suspect]
     Active Substance: CHOLECALCIFEROL
     Indication: Product used for unknown indication
     Dosage: UNK
     Route: 065
  8. COSENTYX [Suspect]
     Active Substance: SECUKINUMAB
     Indication: Psoriatic arthropathy
     Dosage: UNK
     Route: 065
  9. ACTEMRA [Suspect]
     Active Substance: TOCILIZUMAB
     Indication: Rheumatoid arthritis
     Dosage: 752.8 MG
     Route: 065
  10. ACTEMRA [Suspect]
     Active Substance: TOCILIZUMAB
     Dosage: 20 MG
     Route: 065
  11. ACTEMRA [Suspect]
     Active Substance: TOCILIZUMAB
     Dosage: 3011.2 MG
     Route: 065
  12. ADALIMUMAB [Suspect]
     Active Substance: ADALIMUMAB\ISOPROPYL ALCOHOL
     Indication: Rheumatoid arthritis
     Dosage: 40 MG
     Route: 058
  13. ALENDRONATE SODIUM [Suspect]
     Active Substance: ALENDRONATE SODIUM
     Indication: Rheumatoid arthritis
     Dosage: UNK
     Route: 065
  14. CALCIUM GLUBIONATE [Suspect]
     Active Substance: CALCIUM GLUBIONATE
     Indication: Product used for unknown indication
     Dosage: UNK
     Route: 065
  15. CALCIUM GLUBIONATE [Suspect]
     Active Substance: CALCIUM GLUBIONATE
     Dosage: UNK
     Route: 065
  16. CELEBREX [Suspect]
     Active Substance: CELECOXIB
     Indication: Product used for unknown indication
     Dosage: UNK, QD(1 EVERY 1 DAYS)
     Route: 065
  17. CHLORAPREP [Suspect]
     Active Substance: CHLORHEXIDINE GLUCONATE\ISOPROPYL ALCOHOL
     Indication: Product used for unknown indication
     Dosage: UNK(SOLUTION)
     Route: 065
  18. CIMZIA [Suspect]
     Active Substance: CERTOLIZUMAB PEGOL
     Indication: Rheumatoid arthritis
     Dosage: 400 MG
     Route: 065
  19. CORTISONE ACETATE [Suspect]
     Active Substance: CORTISONE ACETATE
     Indication: Rheumatoid arthritis
     Dosage: UNK
     Route: 065
  20. DESOXIMETASONE [Suspect]
     Active Substance: DESOXIMETASONE
     Indication: Rheumatoid arthritis
     Dosage: UNK
     Route: 065
  21. DOXYCYCLINE HYCLATE [Suspect]
     Active Substance: DOXYCYCLINE HYCLATE
     Indication: Product used for unknown indication
     Dosage: 40 MG
     Route: 065
  22. ENBREL [Suspect]
     Active Substance: ETANERCEPT
     Indication: Rheumatoid arthritis
     Dosage: 20 MG, WE(1 EVERY 1 WEEK)
     Route: 065
  23. ENBREL [Suspect]
     Active Substance: ETANERCEPT
     Dosage: 50 MG, WE(1 EVERY 1 WEEK)
     Route: 065
  24. ERELZI [Suspect]
     Active Substance: ETANERCEPT-SZZS
     Indication: Product used for unknown indication
     Dosage: 20 MG
     Route: 065
  25. ERELZI [Suspect]
     Active Substance: ETANERCEPT-SZZS
     Dosage: 50 MG, WE(1 EVERY 1 WEEK)
     Route: 065
  26. FOLIC ACID [Suspect]
     Active Substance: FOLIC ACID
     Indication: Rheumatoid arthritis
     Dosage: 5 MG
     Route: 065
  27. FOLIC ACID [Suspect]
     Active Substance: FOLIC ACID
     Dosage: 3 MG
     Route: 065
  28. FOLIC ACID [Suspect]
     Active Substance: FOLIC ACID
     Dosage: 500 MG
     Route: 065
  29. FOLIC ACID [Suspect]
     Active Substance: FOLIC ACID
     Dosage: 50 MG
     Route: 065
  30. FOLIC ACID [Suspect]
     Active Substance: FOLIC ACID
     Dosage: 1 MG
     Route: 065
  31. FOLIC ACID [Suspect]
     Active Substance: FOLIC ACID
     Dosage: 0.5 MG
     Route: 065
  32. FOSAMAX [Suspect]
     Active Substance: ALENDRONATE SODIUM
     Indication: Rheumatoid arthritis
     Dosage: UNK
     Route: 065
  33. HUMIRA [Suspect]
     Active Substance: ADALIMUMAB
     Indication: Product used for unknown indication
     Dosage: 40 MG
     Route: 058
  34. HYALURONIDASE [Suspect]
     Active Substance: HYALURONIDASE
     Indication: Rheumatoid arthritis
     Dosage: UNK
     Route: 065
  35. HYDROCORTISONE ACETATE [Suspect]
     Active Substance: HYDROCORTISONE ACETATE
     Indication: Product used for unknown indication
     Dosage: UNK
     Route: 065
  36. HYDROXYCHLOROQUINE [Suspect]
     Active Substance: HYDROXYCHLOROQUINE
     Indication: Rheumatoid arthritis
     Dosage: 420 MG, QD
     Route: 065
  37. HYDROXYCHLOROQUINE [Suspect]
     Active Substance: HYDROXYCHLOROQUINE
     Dosage: 400 MG, QD
     Route: 065
  38. HYDROXYCHLOROQUINE [Suspect]
     Active Substance: HYDROXYCHLOROQUINE
     Dosage: 40 MG, QD
     Route: 065
  39. HYDROXYCHLOROQUINE SULFATE [Suspect]
     Active Substance: HYDROXYCHLOROQUINE SULFATE
     Indication: Rheumatoid arthritis
     Dosage: 400 MG, QD
     Route: 065
  40. INFLIXIMAB [Suspect]
     Active Substance: INFLIXIMAB
     Indication: Rheumatoid arthritis
     Dosage: 400 MG
     Route: 065
  41. LEFLUNOMIDE [Suspect]
     Active Substance: LEFLUNOMIDE
     Indication: Rheumatoid arthritis
     Dosage: 20 MG
     Route: 065
  42. FLUMETHASONE PIVALATE [Suspect]
     Active Substance: FLUMETHASONE PIVALATE
     Indication: Rheumatoid arthritis
     Dosage: UNK
     Route: 065
  43. LYRICA [Suspect]
     Active Substance: PREGABALIN
     Indication: Product used for unknown indication
     Dosage: UNK
     Route: 065
  44. METHOTREXATE [Suspect]
     Active Substance: METHOTREXATE
     Indication: Rheumatoid arthritis
     Dosage: 25 MG, QD
     Route: 065
  45. METHOTREXATE [Suspect]
     Active Substance: METHOTREXATE
     Dosage: 10 MG, QD
     Route: 065
  46. METHOTREXATE [Suspect]
     Active Substance: METHOTREXATE
     Dosage: 25 MG, WE
     Route: 065
  47. METHOTREXATE [Suspect]
     Active Substance: METHOTREXATE
     Dosage: 15 MG
     Route: 065
  48. METHOTREXATE [Suspect]
     Active Substance: METHOTREXATE
     Dosage: 20 MG, QD
     Route: 065
  49. MYCOPHENOLATE MOFETIL [Suspect]
     Active Substance: MYCOPHENOLATE MOFETIL
     Indication: Product used for unknown indication
     Dosage: UNK
     Route: 065
  50. NAPROXEN SODIUM [Suspect]
     Active Substance: NAPROXEN\NAPROXEN SODIUM
     Indication: Rheumatoid arthritis
     Dosage: 1000 MG, QD(500 MG, BID (2 EVERY 1 DAYS)
     Route: 065
  51. OTEZLA [Suspect]
     Active Substance: APREMILAST
     Indication: Product used for unknown indication
     Dosage: 3 MG
     Route: 065
  52. OTEZLA [Suspect]
     Active Substance: APREMILAST
     Dosage: 6 MG, QD(3 MG, BID (2 EVERY 1 DAYS)
     Route: 065
  53. OXYCODONE [Suspect]
     Active Substance: OXYCODONE
     Indication: Product used for unknown indication
     Dosage: UNK
     Route: 065
  54. OXYCODONE TEREPHTHALATE [Suspect]
     Active Substance: OXYCODONE TEREPHTHALATE
     Indication: Product used for unknown indication
     Dosage: UNK
     Route: 065
  55. PHTHALYLSULFATHIAZOLE [Suspect]
     Active Substance: PHTHALYLSULFATHIAZOLE
     Indication: Rheumatoid arthritis
     Dosage: 2000 MG, QD(1000 MG, BID (2 EVERY 1 DAYS)
     Route: 065
  56. PHTHALYLSULFATHIAZOLE [Suspect]
     Active Substance: PHTHALYLSULFATHIAZOLE
     Dosage: 1000 MG, QD(500 MG, BID (2 EVERY 1 DAYS)
     Route: 065
  57. PHTHALYLSULFATHIAZOLE [Suspect]
     Active Substance: PHTHALYLSULFATHIAZOLE
     Dosage: 400 MG, QD (1 EVERY 1 DAYS)
     Route: 065
  58. PREDNISONE [Suspect]
     Active Substance: PREDNISONE
     Indication: Rheumatoid arthritis
     Dosage: 5 MG
     Route: 065
  59. PREDNISONE [Suspect]
     Active Substance: PREDNISONE
     Dosage: 5 MG
     Route: 065
  60. PREDNISONE [Suspect]
     Active Substance: PREDNISONE
     Dosage: 40 MG
     Route: 065
  61. PREDNISONE [Suspect]
     Active Substance: PREDNISONE
     Dosage: 40 MG
     Route: 065
  62. PREDNISONE [Suspect]
     Active Substance: PREDNISONE
     Dosage: 7.5 MG
     Route: 065
  63. PREDNISONE [Suspect]
     Active Substance: PREDNISONE
     Dosage: 5 MG
     Route: 065
  64. PSEUDOEPHEDRINE HYDROCHLORIDE [Suspect]
     Active Substance: PSEUDOEPHEDRINE HYDROCHLORIDE
     Indication: Rheumatoid arthritis
     Dosage: UNK
     Route: 065
  65. CETIRIZINE HYDROCHLORIDE [Suspect]
     Active Substance: CETIRIZINE HYDROCHLORIDE
     Indication: Rheumatoid arthritis
     Dosage: 10 MG
     Route: 065
  66. REMICADE [Suspect]
     Active Substance: INFLIXIMAB
     Indication: Rheumatoid arthritis
     Dosage: UNK
     Route: 042
  67. RITUXIMAB [Suspect]
     Active Substance: RITUXIMAB
     Indication: Rheumatoid arthritis
     Dosage: UNK
     Route: 065
  68. SIMPONI [Suspect]
     Active Substance: GOLIMUMAB
     Indication: Rheumatoid arthritis
     Dosage: 50 MG(1 EVERY 1 MONTHS), SOLUTION
     Route: 058
  69. STELARA [Suspect]
     Active Substance: USTEKINUMAB
     Indication: Product used for unknown indication
     Dosage: 45 MG, SOLUTION
     Route: 058
  70. SULFAMETHOXAZOLE [Suspect]
     Active Substance: SULFAMETHOXAZOLE
     Indication: Product used for unknown indication
     Dosage: UNK
     Route: 065
  71. SULFAMETHOXAZOLE\TRIMETHOPRIM [Suspect]
     Active Substance: SULFAMETHOXAZOLE\TRIMETHOPRIM
     Indication: Product used for unknown indication
     Dosage: UNK
     Route: 065
  72. SULFASALAZINE [Suspect]
     Active Substance: SULFASALAZINE
     Indication: Rheumatoid arthritis
     Dosage: 1 G, QD
     Route: 065
  73. SULFASALAZINE [Suspect]
     Active Substance: SULFASALAZINE
     Dosage: 2000 MG, QD(1000 MG, BID)
     Route: 065
  74. SULFASALAZINE [Suspect]
     Active Substance: SULFASALAZINE
     Dosage: 2 G, QD(1 G, BID)
     Route: 065
  75. SULFASALAZINE [Suspect]
     Active Substance: SULFASALAZINE
     Dosage: 500 MG
     Route: 065
  76. XELJANZ [Suspect]
     Active Substance: TOFACITINIB CITRATE
     Indication: Rheumatoid arthritis
     Dosage: 5 MG, QD
     Route: 065
  77. XELJANZ [Suspect]
     Active Substance: TOFACITINIB CITRATE
     Dosage: 5 MG, WE
     Route: 065
  78. XELJANZ [Suspect]
     Active Substance: TOFACITINIB CITRATE
     Dosage: 10 MG, QD(5 MG, BID)
     Route: 065
  79. PERIOGARD [Suspect]
     Active Substance: CHLORHEXIDINE GLUCONATE
     Indication: Product used for unknown indication
     Dosage: UNK(SOLUTION BUCCAL)
     Route: 065
  80. ACETAMINOPHEN [Concomitant]
     Active Substance: ACETAMINOPHEN
     Indication: Product used for unknown indication
     Dosage: UNK
     Route: 065
  81. ATIVAN [Concomitant]
     Active Substance: LORAZEPAM
     Indication: Product used for unknown indication
     Dosage: UNK
     Route: 065
  82. CAFFEINE [Concomitant]
     Active Substance: CAFFEINE
     Indication: Product used for unknown indication
     Dosage: UNK
     Route: 065
  83. DESOGESTREL\ETHINYL ESTRADIOL [Concomitant]
     Active Substance: DESOGESTREL\ETHINYL ESTRADIOL
     Indication: Product used for unknown indication
     Dosage: UNK
     Route: 065
  84. CHOLECALCIFEROL [Concomitant]
     Active Substance: CHOLECALCIFEROL
     Indication: Product used for unknown indication
     Dosage: UNK
     Route: 065
  85. CODEINE [Concomitant]
     Active Substance: CODEINE
     Indication: Product used for unknown indication
     Dosage: UNK
     Route: 065
  86. DEXAMETHASONE [Concomitant]
     Active Substance: DEXAMETHASONE
     Indication: Product used for unknown indication
     Dosage: UNK
     Route: 065
  87. ERGOCALCIFEROL [Concomitant]
     Active Substance: ERGOCALCIFEROL
     Indication: Product used for unknown indication
     Dosage: UNK
     Route: 065
  88. GLUCOSAMINE [Concomitant]
     Active Substance: GLUCOSAMINE
     Indication: Product used for unknown indication
     Dosage: UNK
     Route: 065
  89. IBUPROFEN [Concomitant]
     Active Substance: IBUPROFEN
     Indication: Product used for unknown indication
     Dosage: UNK
     Route: 065
  90. LANSOPRAZOLE [Concomitant]
     Active Substance: LANSOPRAZOLE
     Indication: Product used for unknown indication
     Dosage: UNK (DELAYED RELEASE)
     Route: 065
  91. LEVOTHYROXINE SODIUM [Concomitant]
     Active Substance: LEVOTHYROXINE SODIUM
     Indication: Product used for unknown indication
     Dosage: UNK
     Route: 065
  92. LISINOPRIL [Concomitant]
     Active Substance: LISINOPRIL
     Indication: Product used for unknown indication
     Dosage: UNK
     Route: 065
  93. LORAZEPAM [Concomitant]
     Active Substance: LORAZEPAM
     Indication: Product used for unknown indication
     Dosage: UNK
     Route: 065
  94. MAGNESIUM [Concomitant]
     Active Substance: MAGNESIUM
     Indication: Product used for unknown indication
     Dosage: UNK
     Route: 065
  95. MELOXICAM [Concomitant]
     Active Substance: MELOXICAM
     Indication: Product used for unknown indication
     Dosage: UNK
     Route: 065
  96. PANTOPRAZOLE [Concomitant]
     Active Substance: PANTOPRAZOLE
     Indication: Product used for unknown indication
     Dosage: UNK
     Route: 065
  97. PANTOPRAZOLE SODIUM ANHYDROUS [Concomitant]
     Active Substance: PANTOPRAZOLE SODIUM ANHYDROUS
     Indication: Product used for unknown indication
     Dosage: UNK
     Route: 065
  98. PIROXICAM [Concomitant]
     Active Substance: PIROXICAM
     Indication: Product used for unknown indication
     Dosage: UNK
     Route: 065
  99. PREDNISOLONE [Concomitant]
     Active Substance: PREDNISOLONE
     Indication: Product used for unknown indication
     Dosage: UNK
     Route: 065
  100. PREVACID [Concomitant]
     Active Substance: LANSOPRAZOLE
     Indication: Product used for unknown indication
     Dosage: UNK
     Route: 065
  101. QUETIAPINE [Concomitant]
     Active Substance: QUETIAPINE
     Indication: Product used for unknown indication
     Dosage: UNK
     Route: 065
  102. RAMIPRIL [Concomitant]
     Active Substance: RAMIPRIL
     Indication: Product used for unknown indication
     Dosage: UNK
     Route: 065
  103. RISEDRONATE SODIUM [Concomitant]
     Active Substance: RISEDRONATE SODIUM
     Indication: Product used for unknown indication
     Dosage: UNK
     Route: 065
  104. SULFASALAZINE [Concomitant]
     Active Substance: SULFASALAZINE
     Indication: Product used for unknown indication
     Dosage: UNK
     Route: 065
  105. ALBUTEROL [Concomitant]
     Active Substance: ALBUTEROL
     Indication: Product used for unknown indication
     Dosage: UNK
     Route: 065
  106. TYLENOL [Concomitant]
     Active Substance: ACETAMINOPHEN
     Indication: Product used for unknown indication
     Dosage: UNK
     Route: 065
  107. ZESTRIL [Concomitant]
     Active Substance: LISINOPRIL
     Indication: Product used for unknown indication
     Dosage: UNK
     Route: 065
  108. ZOPICLONE [Concomitant]
     Active Substance: ZOPICLONE
     Indication: Product used for unknown indication
     Dosage: UNK
     Route: 065

REACTIONS (53)
  - Duodenal ulcer perforation [Unknown]
  - Breast cancer stage II [Unknown]
  - Autoimmune disorder [Unknown]
  - Pulmonary fibrosis [Unknown]
  - Deep vein thrombosis postoperative [Unknown]
  - Pneumonia [Unknown]
  - Delirium [Unknown]
  - Drug hypersensitivity [Unknown]
  - Dyspnoea [Unknown]
  - Abdominal discomfort [Unknown]
  - Abdominal pain upper [Unknown]
  - Adjustment disorder with depressed mood [Unknown]
  - Alopecia [Unknown]
  - Amnesia [Unknown]
  - Anxiety [Unknown]
  - Arthralgia [Unknown]
  - Arthropathy [Unknown]
  - Asthenia [Unknown]
  - Asthma [Unknown]
  - Blister [Unknown]
  - Blood cholesterol increased [Unknown]
  - Bursitis [Unknown]
  - C-reactive protein abnormal [Unknown]
  - Chest pain [Unknown]
  - Condition aggravated [Unknown]
  - Confusional state [Unknown]
  - Contusion [Unknown]
  - Decreased appetite [Unknown]
  - Depression [Unknown]
  - Diarrhoea [Unknown]
  - Discomfort [Unknown]
  - Dizziness [Unknown]
  - Dry mouth [Unknown]
  - Dyspepsia [Unknown]
  - Ear pain [Unknown]
  - Fatigue [Unknown]
  - Fibromyalgia [Unknown]
  - Folliculitis [Unknown]
  - Gait disturbance [Unknown]
  - Gait inability [Unknown]
  - Gastrointestinal disorder [Unknown]
  - Grip strength decreased [Unknown]
  - Infection [Unknown]
  - Insomnia [Unknown]
  - Memory impairment [Unknown]
  - Migraine [Unknown]
  - Muscular weakness [Unknown]
  - Nausea [Unknown]
  - Respiratory disorder [Unknown]
  - Sleep disorder [Unknown]
  - Weight decreased [Unknown]
  - Wound infection [Unknown]
  - X-ray abnormal [Unknown]
